FAERS Safety Report 5124211-5 (Version None)
Quarter: 2006Q4

REPORT INFORMATION
  Report Type: 
  Country: None (occurrence: None)
  Receive Date: 20061010
  Receipt Date: 20060929
  Transmission Date: 20070319
  Serious: Yes (Other)
  Sender: FDA-Public Use
  Company Number: US-JNJFOC-20061000243

PATIENT
  Sex: Female

DRUGS (1)
  1. DOXIL [Suspect]
     Indication: OVARIAN CANCER
     Route: 042

REACTIONS (2)
  - CYANOSIS [None]
  - HYPOAESTHESIA [None]
